FAERS Safety Report 8000338-5 (Version None)
Quarter: 2011Q4

REPORT INFORMATION
  Report Type: 
  Country: None (occurrence: None)
  Receive Date: 20111222
  Receipt Date: 20111214
  Transmission Date: 20120403
  Serious: Yes (Other)
  Sender: FDA-Public Use
  Company Number: JP-ASTELLAS-2011JP008283

PATIENT
  Sex: Male
  Weight: 56.1 kg

DRUGS (13)
  1. PREDNISOLONE [Concomitant]
     Dosage: 7.5 MG, BID
     Route: 048
     Dates: start: 20110302, end: 20110405
  2. PROGRAF [Suspect]
     Indication: COLITIS ULCERATIVE
     Dosage: 6 MG, BID
     Route: 048
     Dates: start: 20101111, end: 20110531
  3. PREDNISOLONE [Concomitant]
     Dosage: 7.5 MG, UID/QD
     Route: 048
     Dates: start: 20110601, end: 20110609
  4. LEUKERIN [Concomitant]
     Dosage: 0.3 G, UID/QD
     Route: 048
     Dates: start: 20110216
  5. PROGRAF [Interacting]
     Dosage: 8 MG, BID
     Route: 048
     Dates: start: 20110601
  6. PREDNISOLONE [Concomitant]
     Dosage: 5 MG, UID/QD
     Route: 048
     Dates: start: 20110610
  7. SAIREI-TO [Concomitant]
     Dosage: 3 G, TID
     Route: 048
     Dates: start: 20101215
  8. PREDNISOLONE [Concomitant]
     Dosage: 6.25 MG, BID
     Route: 048
     Dates: start: 20110406, end: 20110510
  9. PREDNISOLONE [Concomitant]
     Dosage: 10 MG, UID/QD
     Route: 048
     Dates: start: 20110511, end: 20110531
  10. CALCIUM PARAAMINOSALICYLATE HYDRATE [Concomitant]
     Route: 065
  11. PREDNISOLONE [Concomitant]
     Dosage: 10 MG, BID
     Route: 048
     Dates: start: 20101215, end: 20110301
  12. ASACOL [Concomitant]
     Dosage: 1.2 MG, TID
     Route: 048
     Dates: start: 20110309
  13. SULFASALAZINE [Interacting]
     Indication: COLITIS ULCERATIVE
     Dosage: 1 G, QID
     Route: 048
     Dates: start: 20110105, end: 20110308

REACTIONS (2)
  - DRUG LEVEL DECREASED [None]
  - DRUG INTERACTION [None]
